FAERS Safety Report 7498497-6 (Version None)
Quarter: 2011Q2

REPORT INFORMATION
  Report Type: 
  Country: None (occurrence: None)
  Receive Date: 20110524
  Receipt Date: 20110418
  Transmission Date: 20111010
  Serious: Yes (Hospitalization)
  Sender: FDA-Public Use
  Company Number: US-BAYER-201033314NA

PATIENT
  Sex: Female
  Weight: 90.703 kg

DRUGS (5)
  1. BENTYL [Concomitant]
  2. YASMIN [Suspect]
     Indication: CONTRACEPTION
     Dosage: UNK
     Route: 048
     Dates: start: 20010101, end: 20090101
  3. LEXAPRO [Concomitant]
     Dosage: 20 MG, UNK
     Route: 048
  4. XANAX [Concomitant]
     Dosage: 0.5 MG, UNK
  5. YAZ [Suspect]
     Indication: CONTRACEPTION
     Dosage: UNK
     Route: 048
     Dates: start: 20010101, end: 20090101

REACTIONS (6)
  - GALLBLADDER NON-FUNCTIONING [None]
  - UNEVALUABLE EVENT [None]
  - CHOLECYSTITIS [None]
  - GENERAL PHYSICAL HEALTH DETERIORATION [None]
  - BILIARY COLIC [None]
  - ORGAN FAILURE [None]
